FAERS Safety Report 26076474 (Version 2)
Quarter: 2025Q4

REPORT INFORMATION
  Report Type: Report from Study
  Country: US (occurrence: US)
  Receive Date: 20251121
  Receipt Date: 20251203
  Transmission Date: 20260118
  Serious: Yes (Other)
  Sender: pharmaAND
  Company Number: US-Pharmaand-2025000988

PATIENT
  Age: 72 Year
  Sex: Female

DRUGS (2)
  1. RUBRACA [Suspect]
     Active Substance: RUCAPARIB CAMSYLATE
     Indication: Ureteric cancer
     Dosage: 400 MG BID
     Route: 048
  2. RUBRACA [Suspect]
     Active Substance: RUCAPARIB CAMSYLATE
     Indication: Ureteric cancer
     Dosage: 200 MG BID
     Route: 048

REACTIONS (3)
  - Syncope [Recovering/Resolving]
  - Fatigue [Recovering/Resolving]
  - Off label use [Recovered/Resolved]
